FAERS Safety Report 13121655 (Version 3)
Quarter: 2017Q1

REPORT INFORMATION
  Report Type: Spontaneous
  Country: TW (occurrence: TW)
  Receive Date: 20170117
  Receipt Date: 20170125
  Transmission Date: 20170428
  Serious: Yes (Life-Threatening)
  Sender: FDA-Public Use
  Company Number: TW-PFIZER INC-2017012690

PATIENT
  Age: 42 Year
  Sex: Male
  Weight: 129 kg

DRUGS (1)
  1. TYGACIL [Suspect]
     Active Substance: TIGECYCLINE
     Indication: CELLULITIS
     Dosage: 2 DF, SINGLE (AS A LOADING DOSE)
     Route: 041
     Dates: start: 20161217, end: 20161217

REACTIONS (5)
  - Oxygen saturation decreased [Recovered/Resolved]
  - Dyspnoea [Recovered/Resolved]
  - Hypersensitivity [Recovered/Resolved]
  - Chills [Recovered/Resolved]
  - Bronchospasm [Recovered/Resolved]

NARRATIVE: CASE EVENT DATE: 20161217
